FAERS Safety Report 24350117 (Version 1)
Quarter: 2024Q3

REPORT INFORMATION
  Report Type: Spontaneous
  Country: US (occurrence: US)
  Receive Date: 20240923
  Receipt Date: 20240923
  Transmission Date: 20241016
  Serious: No
  Sender: MISSION
  Company Number: US-Mission Pharmacal Company-2161919

PATIENT
  Age: 77 Year
  Sex: Female

DRUGS (1)
  1. THIOLA EC [Suspect]
     Active Substance: TIOPRONIN
     Dates: start: 20190730

REACTIONS (1)
  - Chronic kidney disease [Unknown]
